FAERS Safety Report 8223349-3 (Version None)
Quarter: 2012Q1

REPORT INFORMATION
  Report Type: 
  Country: None (occurrence: None)
  Receive Date: 20120321
  Receipt Date: 20120309
  Transmission Date: 20120608
  Serious: Yes (Other)
  Sender: FDA-Public Use
  Company Number: FR-ELI_LILLY_AND_COMPANY-FR201202000676

PATIENT
  Age: 60 Year
  Sex: Male
  Weight: 79 kg

DRUGS (1)
  1. FORTEO [Suspect]
     Indication: OSTEOPOROSIS
     Dosage: 20 UG, QD
     Route: 058
     Dates: start: 20100629, end: 20111201

REACTIONS (5)
  - HEADACHE [None]
  - RESPIRATORY FAILURE [None]
  - ABDOMINAL PAIN [None]
  - PAIN IN EXTREMITY [None]
  - DIZZINESS [None]
